FAERS Safety Report 6194353-4 (Version None)
Quarter: 2009Q2

REPORT INFORMATION
  Report Type: 
  Country: None (occurrence: None)
  Receive Date: 20090515
  Receipt Date: 20090511
  Transmission Date: 20091009
  Serious: Yes (Death, Hospitalization)
  Sender: FDA-Public Use
  Company Number: 2009-01878

PATIENT
  Age: 69 Year
  Sex: Female
  Weight: 60 kg

DRUGS (2)
  1. VELCADE [Suspect]
     Indication: ACUTE MYELOID LEUKAEMIA
     Dosage: 1.6 MG, INTRAVENOUS
     Route: 042
     Dates: start: 20090430, end: 20090430
  2. TIPIFAMIB(TIPIFARNIB) ORAL DRUG UNSPECIFIED FORM [Suspect]
     Indication: ACUTE MYELOID LEUKAEMIA
     Dosage: 300 MG, ORAL
     Route: 048
     Dates: start: 20090501, end: 20090504

REACTIONS (1)
  - CONFUSIONAL STATE [None]
